FAERS Safety Report 7338343-4 (Version None)
Quarter: 2011Q1

REPORT INFORMATION
  Report Type: 
  Country: None (occurrence: None)
  Receive Date: 20110308
  Receipt Date: 20110302
  Transmission Date: 20110831
  Serious: Yes (Hospitalization)
  Sender: FDA-Public Use
  Company Number: CA-ABBOTT-11P-028-0709109-00

PATIENT
  Sex: Female
  Weight: 59.02 kg

DRUGS (8)
  1. HUMIRA [Suspect]
     Indication: PSORIASIS
     Route: 058
     Dates: start: 20100915
  2. GLUCONORM [Concomitant]
     Indication: DIABETES MELLITUS
     Route: 048
     Dates: start: 20060101
  3. LANSOPRAZOLE [Concomitant]
     Indication: HERNIA
     Route: 048
     Dates: start: 20060101
  4. METHOTREXATE [Concomitant]
     Indication: RHEUMATOID ARTHRITIS
     Route: 048
     Dates: start: 20100901
  5. SULFATE [Concomitant]
     Indication: MINERAL SUPPLEMENTATION
     Route: 048
     Dates: start: 20101001
  6. FOLIC ACID [Concomitant]
     Indication: VITAMIN SUPPLEMENTATION
     Dosage: 1 DAILY, 6/7 DAYS
     Route: 048
     Dates: start: 20100901
  7. COZAAR [Concomitant]
     Indication: HYPERTENSION
     Route: 048
     Dates: start: 20060101
  8. APO-ZOPICLONE [Concomitant]
     Indication: INSOMNIA
     Route: 048
     Dates: start: 20060101

REACTIONS (5)
  - VAGINAL DISCHARGE [None]
  - DEHYDRATION [None]
  - ASTHENIA [None]
  - URINE ABNORMALITY [None]
  - WEIGHT INCREASED [None]
